FAERS Safety Report 4449287-X (Version None)
Quarter: 2004Q3

REPORT INFORMATION
  Report Type: 
  Country: None (occurrence: None)
  Receive Date: 20040913
  Receipt Date: 20040902
  Transmission Date: 20050211
  Serious: Yes (Hospitalization)
  Sender: FDA-Public Use
  Company Number: 208850

PATIENT
  Age: 75 Year
  Sex: Male
  Weight: 81 kg

DRUGS (2)
  1. TENECTEPLASE (TENECTEPLASE) PWDR + SOLVENT, INJECTION SOLN, 50 MG [Suspect]
     Indication: CORONARY ARTERY OCCLUSION
     Dosage: 4 MG, SINGLE, INTRACORONARY
     Route: 022
     Dates: start: 20031106, end: 20031106
  2. HEPARIN [Concomitant]

REACTIONS (2)
  - ANAEMIA [None]
  - GASTRIC HAEMORRHAGE [None]
